FAERS Safety Report 22911792 (Version 4)
Quarter: 2023Q4

REPORT INFORMATION
  Report Type: Spontaneous
  Country: US (occurrence: US)
  Receive Date: 20230906
  Receipt Date: 20231214
  Transmission Date: 20240109
  Serious: No
  Sender: FDA-Public Use
  Company Number: US-002147023-NVSC2023US192363

PATIENT
  Sex: Female

DRUGS (4)
  1. TAFINLAR [Suspect]
     Active Substance: DABRAFENIB MESYLATE
     Indication: Malignant melanoma
     Dosage: 150 MG, BID (EVERY 12 HOUR))
     Route: 048
     Dates: start: 202309
  2. TAFINLAR [Suspect]
     Active Substance: DABRAFENIB MESYLATE
     Indication: Intestinal metastasis
     Dosage: 100 MG, Q12H
     Route: 048
     Dates: start: 202309
  3. MEKINIST [Suspect]
     Active Substance: TRAMETINIB DIMETHYL SULFOXIDE
     Indication: Intestinal metastasis
     Dosage: 2 MG, QD
     Route: 048
     Dates: start: 202309
  4. MEKINIST [Suspect]
     Active Substance: TRAMETINIB DIMETHYL SULFOXIDE
     Indication: Intestinal metastasis

REACTIONS (9)
  - Feeling cold [Unknown]
  - Walking aid user [Unknown]
  - Fall [Unknown]
  - Visual impairment [Unknown]
  - Dizziness [Recovering/Resolving]
  - Pain in extremity [Unknown]
  - Peripheral swelling [Unknown]
  - Pyrexia [Recovering/Resolving]
  - Rash [Unknown]
